FAERS Safety Report 6261996-9 (Version None)
Quarter: 2009Q3

REPORT INFORMATION
  Report Type: 
  Country: None (occurrence: None)
  Receive Date: 20090707
  Receipt Date: 20090707
  Transmission Date: 20100115
  Serious: Yes (Life-Threatening, Other)
  Sender: FDA-Public Use
  Company Number: None

PATIENT
  Age: 39 Year
  Sex: Female
  Weight: 55.3388 kg

DRUGS (6)
  1. HUMULIN N [Suspect]
     Indication: TYPE 1 DIABETES MELLITUS
     Dosage: 16/6 IU, 4 U AS NEEDED DAILY SQ 43 YEARS, 23 YEARS-CLONE
     Dates: start: 19850804
  2. LANTUS [Suspect]
     Indication: TYPE 1 DIABETES MELLITUS
     Dosage: 5/5/2-10 AS NEEDED DAILY SQ 1 MO., FOUR YEARS
     Dates: start: 19850804
  3. HUMULIN R [Suspect]
  4. HUMALOG [Suspect]
  5. LEVEMIR [Suspect]
  6. NOVOLOG [Suspect]

REACTIONS (1)
  - PRODUCT QUALITY ISSUE [None]
